FAERS Safety Report 24340012 (Version 1)
Quarter: 2024Q3

REPORT INFORMATION
  Report Type: Spontaneous
  Country: US (occurrence: US)
  Receive Date: 20240919
  Receipt Date: 20240919
  Transmission Date: 20241017
  Serious: No
  Sender: PFIZER
  Company Number: US-PFIZER INC-PV202400122258

PATIENT
  Age: 42 Year
  Sex: Female

DRUGS (12)
  1. FLAGYL [Suspect]
     Active Substance: METRONIDAZOLE\METRONIDAZOLE HYDROCHLORIDE
  2. CLONAZEPAM [Concomitant]
     Active Substance: CLONAZEPAM
  3. TOPAMAX [Concomitant]
     Active Substance: TOPIRAMATE
  4. PROZAC [Concomitant]
     Active Substance: FLUOXETINE HYDROCHLORIDE
  5. WELLBUTRIN [Concomitant]
     Active Substance: BUPROPION HYDROCHLORIDE
  6. BUSPAR [Concomitant]
     Active Substance: BUSPIRONE HYDROCHLORIDE
  7. CEFIXIME [Concomitant]
     Active Substance: CEFIXIME
  8. FIORICET [Concomitant]
     Active Substance: ACETAMINOPHEN\BUTALBITAL\CAFFEINE
  9. TYLENOL [Concomitant]
     Active Substance: ACETAMINOPHEN
  10. VYEPTI [Concomitant]
     Active Substance: EPTINEZUMAB-JJMR
  11. COUMADIN [Concomitant]
     Active Substance: WARFARIN SODIUM
  12. LEVOFLOXACIN [Concomitant]
     Active Substance: LEVOFLOXACIN

REACTIONS (1)
  - Palpitations [Unknown]
